FAERS Safety Report 24587137 (Version 1)
Quarter: 2024Q4

REPORT INFORMATION
  Report Type: Other
  Country: CA (occurrence: CA)
  Receive Date: 20241107
  Receipt Date: 20241107
  Transmission Date: 20250114
  Serious: Yes (Death, Other)
  Sender: APOTEX
  Company Number: CA-APOTEX-2023AP017944

PATIENT
  Sex: Male

DRUGS (2)
  1. DASATINIB [Interacting]
     Active Substance: DASATINIB
     Indication: Leukaemia
     Dosage: 140 MILLIGRAM, QD
     Route: 048
     Dates: start: 20231129, end: 2024
  2. DASATINIB [Interacting]
     Active Substance: DASATINIB
     Indication: Leukaemia
     Dosage: 140 MILLIGRAM, QD
     Route: 048
     Dates: start: 20231129, end: 2024

REACTIONS (2)
  - Death [Fatal]
  - Drug interaction [Unknown]

NARRATIVE: CASE EVENT DATE: 20230101
